FAERS Safety Report 20882516 (Version 1)
Quarter: 2022Q2

REPORT INFORMATION
  Report Type: Spontaneous
  Country: US (occurrence: US)
  Receive Date: 20220527
  Receipt Date: 20220527
  Transmission Date: 20220720
  Serious: No
  Sender: FDA-Public Use
  Company Number: US-AUROBINDO-AUR-APL-2022-006248

PATIENT
  Sex: Female

DRUGS (1)
  1. AZELASTINE HYDROCHLORIDE [Suspect]
     Active Substance: AZELASTINE HYDROCHLORIDE
     Indication: Product used for unknown indication
     Dosage: TWO TIMES A DAY (02 TIMES EACH IN NOSE)
     Route: 065

REACTIONS (3)
  - Feeling abnormal [Unknown]
  - Product taste abnormal [Unknown]
  - Product use complaint [Unknown]
